FAERS Safety Report 16057440 (Version 4)
Quarter: 2020Q2

REPORT INFORMATION
  Report Type: Report from Study
  Country: CO (occurrence: CO)
  Receive Date: 20190311
  Receipt Date: 20200528
  Transmission Date: 20200713
  Serious: Yes (Hospitalization, Other)
  Sender: FDA-Public Use
  Company Number: CO-ASTELLAS-2019US009067

PATIENT
  Age: 81 Year
  Sex: Male

DRUGS (5)
  1. ENZALUTAMIDE [Suspect]
     Active Substance: ENZALUTAMIDE
     Route: 048
     Dates: end: 201904
  2. ENZALUTAMIDE [Suspect]
     Active Substance: ENZALUTAMIDE
     Indication: HORMONE-REFRACTORY PROSTATE CANCER
     Route: 048
     Dates: start: 20181022, end: 201902
  3. PROPRANOLOL [Concomitant]
     Active Substance: PROPRANOLOL HYDROCHLORIDE
     Indication: PRODUCT USED FOR UNKNOWN INDICATION
     Route: 065
  4. ENZALUTAMIDE [Suspect]
     Active Substance: ENZALUTAMIDE
     Route: 048
  5. ENZALUTAMIDE [Suspect]
     Active Substance: ENZALUTAMIDE
     Route: 048

REACTIONS (28)
  - Muscular weakness [Not Recovered/Not Resolved]
  - Pyrexia [Recovered/Resolved]
  - General physical health deterioration [Not Recovered/Not Resolved]
  - Cardiac dysfunction [Not Recovered/Not Resolved]
  - Fall [Not Recovered/Not Resolved]
  - Emotional distress [Not Recovered/Not Resolved]
  - Cough [Not Recovered/Not Resolved]
  - Blood thyroid stimulating hormone increased [Not Recovered/Not Resolved]
  - Pneumonia [Not Recovered/Not Resolved]
  - Fatigue [Not Recovered/Not Resolved]
  - Prostatic specific antigen increased [Not Recovered/Not Resolved]
  - Pneumonia bacterial [Not Recovered/Not Resolved]
  - Pain [Not Recovered/Not Resolved]
  - Blood bilirubin increased [Not Recovered/Not Resolved]
  - Insurance issue [Unknown]
  - Therapy cessation [Unknown]
  - Thoracic outlet syndrome [Not Recovered/Not Resolved]
  - Chronic obstructive pulmonary disease [Not Recovered/Not Resolved]
  - Viral infection [Unknown]
  - Chest pain [Recovered/Resolved]
  - Abdominal pain [Not Recovered/Not Resolved]
  - Diarrhoea [Not Recovered/Not Resolved]
  - Choking [Recovered/Resolved]
  - Diarrhoea [Not Recovered/Not Resolved]
  - Ascites [Recovered/Resolved]
  - Respiratory distress [Recovered/Resolved]
  - Malaise [Unknown]
  - Mood altered [Not Recovered/Not Resolved]

NARRATIVE: CASE EVENT DATE: 201811
